FAERS Safety Report 17337591 (Version 1)
Quarter: 2020Q1

REPORT INFORMATION
  Report Type: Spontaneous
  Country: US (occurrence: US)
  Receive Date: 20200129
  Receipt Date: 20200129
  Transmission Date: 20200409
  Serious: No
  Sender: FDA-Public Use
  Company Number: US-CIPLA LTD.-2019US07083

PATIENT

DRUGS (4)
  1. GABAPENTIN. [Suspect]
     Active Substance: GABAPENTIN
     Dosage: TWO 100 MG PILLS IN THE MORNING, TWO 100 MG PILLS IN THE AFTERNOON AND ONE 300 MG PILL IN THE NIGHT
     Route: 048
     Dates: start: 201910
  2. GABAPENTIN. [Suspect]
     Active Substance: GABAPENTIN
     Indication: PRODUCT USED FOR UNKNOWN INDICATION
     Dosage: 100 MILLIGRAM (2 IN MORNING, 1 IN NIGHT)
     Route: 048
  3. GABAPENTIN. [Suspect]
     Active Substance: GABAPENTIN
     Dosage: 300 MILLIGRAM DAILY
     Route: 048
     Dates: start: 201910
  4. GABAPENTIN. [Suspect]
     Active Substance: GABAPENTIN
     Dosage: 100 MILLIGRAM (TWO PILLS IN THE MORNING, THREE PILLS IN THE AFTERNOON AND THREE PILLS AT NIGHT)
     Route: 048
     Dates: start: 201910

REACTIONS (3)
  - Respiration abnormal [Unknown]
  - Dizziness [Unknown]
  - Somnolence [Unknown]

NARRATIVE: CASE EVENT DATE: 201910
